FAERS Safety Report 5634589-1 (Version None)
Quarter: 2008Q1

REPORT INFORMATION
  Report Type: 
  Country: None (occurrence: None)
  Receive Date: 20080222
  Receipt Date: 20080213
  Transmission Date: 20080703
  Serious: Yes (Other)
  Sender: FDA-Public Use
  Company Number: US-JNJFOC-20080203116

PATIENT
  Sex: Female
  Weight: 56.7 kg

DRUGS (6)
  1. REMICADE [Suspect]
  2. REMICADE [Suspect]
     Indication: RHEUMATOID ARTHRITIS
  3. METHOTREXATE [Concomitant]
  4. FOLIC ACID [Concomitant]
  5. HORMONE PATCH [Concomitant]
  6. NYSTATIN [Concomitant]

REACTIONS (9)
  - ACNE [None]
  - BREAST CYST [None]
  - DEPRESSION [None]
  - ERYTHEMA [None]
  - FATIGUE [None]
  - PRURITUS [None]
  - RASH [None]
  - SINUSITIS [None]
  - TINEA PEDIS [None]
